FAERS Safety Report 8660546 (Version 2)
Quarter: 2012Q4

REPORT INFORMATION
  Report Type: 
  Country: AU (occurrence: NZ)
  Receive Date: 20120711
  Receipt Date: 20121008
  Transmission Date: 20130627
  Serious: Yes (Other)
  Sender: FDA-Public Use
  Company Number: NZ-BRISTOL-MYERS SQUIBB COMPANY-16732539

PATIENT
  Age: 67 Year
  Sex: Male

DRUGS (10)
  1. BARACLUDE [Suspect]
     Indication: HEPATITIS B
     Route: 048
     Dates: start: 20101208, end: 20120718
  2. CYCLOSPORIN [Concomitant]
  3. ATORVASTATIN [Concomitant]
  4. MYCOPHENOLATE MOFETIL [Concomitant]
  5. CARVEDILOL [Concomitant]
  6. PREDNISONE [Concomitant]
  7. METOPROLOL [Concomitant]
  8. FUROSEMIDE [Concomitant]
  9. ISOSORBIDE MONONITRATE [Concomitant]
  10. ACETYLSALICYLIC ACID [Concomitant]

REACTIONS (3)
  - Renal failure acute [Unknown]
  - Neutropenia [Unknown]
  - Arthropathy [Unknown]
